FAERS Safety Report 10222073 (Version 1)
Quarter: 2014Q2

REPORT INFORMATION
  Report Type: Spontaneous
  Country: BR (occurrence: BR)
  Receive Date: 20140606
  Receipt Date: 20140606
  Transmission Date: 20141212
  Serious: No
  Sender: FDA-Public Use
  Company Number: BR-BIOMARINAP-BR-2014-102976

PATIENT
  Sex: Male
  Weight: 20 kg

DRUGS (1)
  1. NAGLAZYME [Suspect]
     Indication: MUCOPOLYSACCHARIDOSIS VI
     Dosage: 15 MG, UNK
     Route: 041
     Dates: start: 20080416

REACTIONS (4)
  - Fall [Unknown]
  - Muscular weakness [Unknown]
  - Sensory disturbance [Unknown]
  - Autonomic nervous system imbalance [Unknown]
